FAERS Safety Report 9748325 (Version 3)
Quarter: 2014Q1

REPORT INFORMATION
  Report Type: Report from Study
  Country: DE (occurrence: DE)
  Receive Date: 20131212
  Receipt Date: 20140110
  Transmission Date: 20141002
  Serious: Yes (Death, Hospitalization, Other)
  Sender: FDA-Public Use
  Company Number: PHHY2013DE145319

PATIENT
  Sex: 0
  Weight: 94 kg

DRUGS (15)
  1. AMN107 [Suspect]
     Indication: CHRONIC MYELOID LEUKAEMIA
     Dosage: 400 MG, DAY
     Route: 048
     Dates: start: 20130529
  2. CISPLATIN [Concomitant]
     Dates: start: 20130403, end: 20130814
  3. ASS [Concomitant]
     Indication: HAEMODILUTION
     Dosage: 100 MG, PER DAY
     Route: 048
  4. ALLOPURINOL [Concomitant]
     Indication: GOUT
     Dosage: 300 MG, DAILY
     Route: 048
     Dates: start: 20131021
  5. AMLODIPINE [Concomitant]
     Indication: HYPERTENSION
     Dosage: 5 MG, PER DAY
     Route: 048
  6. FUROSEMIDE [Concomitant]
     Dosage: 40 MG
     Dates: start: 20130529
  7. ERYTHROCYTES [Concomitant]
     Dates: start: 20130717, end: 20130717
  8. ERYTHROCYTES [Concomitant]
     Dates: start: 20130820, end: 20130820
  9. NACL [Concomitant]
     Indication: BLOOD CREATININE INCREASED
     Dosage: 1000 ML
     Dates: start: 20130717, end: 20130717
  10. NACL [Concomitant]
     Dosage: 1000 ML
     Dates: start: 20130801, end: 20130801
  11. NACL [Concomitant]
     Dosage: 1000 ML
     Dates: start: 20130802, end: 20130802
  12. PREDNISOLONE [Concomitant]
     Indication: CHRONIC OBSTRUCTIVE PULMONARY DISEASE
     Dosage: 20 MG, DAY
     Route: 048
     Dates: start: 20130916
  13. LANTUS [Concomitant]
  14. OXIS [Concomitant]
  15. PANTOZOL [Concomitant]
     Dosage: 40 MG
     Dates: start: 20131117, end: 20131202

REACTIONS (4)
  - General physical health deterioration [Fatal]
  - Metastases to central nervous system [Not Recovered/Not Resolved]
  - Pneumonia [Recovered/Resolved]
  - Malaise [Recovered/Resolved]
